FAERS Safety Report 5407629-2 (Version None)
Quarter: 2007Q3

REPORT INFORMATION
  Report Type: 
  Country: None (occurrence: None)
  Receive Date: 20070807
  Receipt Date: 20070727
  Transmission Date: 20080115
  Serious: Yes (Other)
  Sender: FDA-Public Use
  Company Number: US-PFIZER INC-2007047020

PATIENT
  Sex: Female

DRUGS (2)
  1. DETROL [Suspect]
  2. TROSPIUM [Suspect]

REACTIONS (8)
  - DYSPEPSIA [None]
  - DYSPHAGIA [None]
  - GASTRIN SECRETION DISORDER [None]
  - GASTROINTESTINAL DISORDER [None]
  - GASTROINTESTINAL HYPOMOTILITY [None]
  - GASTROOESOPHAGEAL REFLUX DISEASE [None]
  - RESPIRATORY ARREST [None]
  - SALIVA ALTERED [None]
